FAERS Safety Report 25421168 (Version 1)
Quarter: 2025Q2

REPORT INFORMATION
  Report Type: Spontaneous
  Country: US (occurrence: US)
  Receive Date: 20250611
  Receipt Date: 20250611
  Transmission Date: 20250716
  Serious: No
  Sender: ELI LILLY AND COMPANY
  Company Number: US-ELI_LILLY_AND_COMPANY-US202505026110

PATIENT
  Age: 36 Year
  Sex: Female

DRUGS (6)
  1. ZEPBOUND [Suspect]
     Active Substance: TIRZEPATIDE
     Indication: Weight control
     Route: 065
     Dates: start: 202407
  2. ZEPBOUND [Suspect]
     Active Substance: TIRZEPATIDE
     Indication: Weight control
     Route: 065
     Dates: start: 202407
  3. ZEPBOUND [Suspect]
     Active Substance: TIRZEPATIDE
     Indication: Weight control
     Route: 065
     Dates: start: 202407
  4. ZEPBOUND [Suspect]
     Active Substance: TIRZEPATIDE
     Indication: Weight control
     Route: 065
     Dates: start: 202407
  5. ZEPBOUND [Suspect]
     Active Substance: TIRZEPATIDE
     Indication: Weight control
     Dosage: 5 MG, WEEKLY (1/W)
     Route: 065
     Dates: start: 202505
  6. ZEPBOUND [Suspect]
     Active Substance: TIRZEPATIDE
     Indication: Antiinflammatory therapy

REACTIONS (10)
  - Food aversion [Recovered/Resolved]
  - Increased appetite [Unknown]
  - Musculoskeletal stiffness [Unknown]
  - Pain [Unknown]
  - Hunger [Unknown]
  - Food craving [Unknown]
  - Nausea [Recovered/Resolved]
  - Asthenia [Unknown]
  - Sluggishness [Unknown]
  - Blood pressure decreased [Recovering/Resolving]
